FAERS Safety Report 19471229 (Version 1)
Quarter: 2021Q2

REPORT INFORMATION
  Report Type: Spontaneous
  Country: GB (occurrence: GB)
  Receive Date: 20210629
  Receipt Date: 20210629
  Transmission Date: 20210717
  Serious: Yes (Hospitalization)
  Sender: FDA-Public Use
  Company Number: GB-DRREDDYS-SPO/UKI/21/0136765

PATIENT
  Age: 84 Year
  Sex: Female

DRUGS (4)
  1. BENDROFLUMETHIAZIDE [Concomitant]
     Active Substance: BENDROFLUMETHIAZIDE
     Indication: ILL-DEFINED DISORDER
  2. MEMANTINE. [Suspect]
     Active Substance: MEMANTINE
     Indication: MEMORY IMPAIRMENT
     Route: 048
     Dates: start: 20210521
  3. MEMANTINE. [Suspect]
     Active Substance: MEMANTINE
     Route: 048
     Dates: start: 20210521
  4. CANDESARTAN CILEXETIL. [Concomitant]
     Active Substance: CANDESARTAN CILEXETIL
     Indication: ILL-DEFINED DISORDER

REACTIONS (1)
  - Fall [Unknown]

NARRATIVE: CASE EVENT DATE: 20210614
